FAERS Safety Report 10632677 (Version 1)
Quarter: 2014Q4

REPORT INFORMATION
  Report Type: Spontaneous
  Country: US (occurrence: US)
  Receive Date: 20141205
  Receipt Date: 20141205
  Transmission Date: 20150529
  Serious: No
  Sender: FDA-Public Use
  Company Number: US-BRISTOL-MYERS SQUIBB COMPANY-21594775

PATIENT
  Age: 57 Year
  Sex: Female
  Weight: 156.46 kg

DRUGS (1)
  1. BYETTA [Suspect]
     Active Substance: EXENATIDE
     Indication: TYPE 2 DIABETES MELLITUS
     Dosage: PRESCRIBED DOSE: 2/DAY
     Route: 058
     Dates: start: 2010, end: 2011

REACTIONS (1)
  - Drug administration error [Unknown]
